FAERS Safety Report 7821645-2 (Version None)
Quarter: 2011Q4

REPORT INFORMATION
  Report Type: 
  Country: None (occurrence: None)
  Receive Date: 20111018
  Receipt Date: 20110712
  Transmission Date: 20120403
  Serious: No
  Sender: FDA-Public Use
  Company Number: US-ASTRAZENECA-2011SE42609

PATIENT
  Age: 34 Year
  Sex: Female

DRUGS (3)
  1. SYMBICORT [Suspect]
     Dosage: 1 INHALATION IN MORNING AND IN EVENING
     Route: 055
     Dates: start: 20110628, end: 20110711
  2. PROAIR HFA [Concomitant]
     Route: 055
     Dates: start: 20110705, end: 20110711
  3. SYMBICORT [Suspect]
     Dosage: THREE TIMES A DAY
     Route: 055

REACTIONS (9)
  - HYPOPNOEA [None]
  - CHEST DISCOMFORT [None]
  - FEELING HOT [None]
  - DIZZINESS [None]
  - DYSPNOEA [None]
  - ASTHMA [None]
  - PARAESTHESIA [None]
  - FEELING COLD [None]
  - FATIGUE [None]
